FAERS Safety Report 19050623 (Version 1)
Quarter: 2021Q1

REPORT INFORMATION
  Report Type: Spontaneous
  Country: DE (occurrence: DE)
  Receive Date: 20210323
  Receipt Date: 20210323
  Transmission Date: 20210420
  Serious: Yes (Hospitalization)
  Sender: FDA-Public Use
  Company Number: DE-US-PROVELL PHARMACEUTICALS LLC-E2B_90082802

PATIENT
  Age: 14 Year
  Sex: Female
  Weight: 56 kg

DRUGS (5)
  1. L?THYROXIN [Suspect]
     Active Substance: LEVOTHYROXINE SODIUM
     Indication: SUICIDAL IDEATION
     Dosage: DAILY DOSE: 24 DF DOSAGE FORM EVERY DAYS
     Route: 048
     Dates: start: 20191120, end: 20191120
  2. ASPIRIN                            /00002701/ [Suspect]
     Active Substance: ASPIRIN
     Indication: SUICIDAL IDEATION
     Dosage: DAILY DOSE: 10 DF DOSAGE FORM EVERY DAYS
     Route: 048
     Dates: start: 20191120, end: 20191120
  3. AGOMELATIN [Suspect]
     Active Substance: AGOMELATINE
     Indication: SUICIDAL IDEATION
     Dosage: DAILY DOSE: 14 DF DOSAGE FORM EVERY DAYS
     Route: 048
     Dates: start: 20191120, end: 20191120
  4. PROPRANOLOL [Suspect]
     Active Substance: PROPRANOLOL HYDROCHLORIDE
     Indication: SUICIDAL IDEATION
     Dosage: DAILY DOSE: 10 DF DOSAGE FORM EVERY DAYS
     Route: 048
     Dates: start: 20191120, end: 20191120
  5. MICROGYNON                         /00022701/ [Suspect]
     Active Substance: ETHINYL ESTRADIOL\LEVONORGESTREL ACETATE
     Indication: SUICIDAL IDEATION
     Dosage: DAILY DOSE: 21 DF DOSAGE FORM EVERY DAYS
     Route: 048
     Dates: start: 20191120, end: 20191120

REACTIONS (5)
  - Nausea [Unknown]
  - Toxicity to various agents [Recovered/Resolved]
  - Hallucination [Unknown]
  - Dizziness [Unknown]
  - Intentional overdose [Recovered/Resolved]

NARRATIVE: CASE EVENT DATE: 20191120
